FAERS Safety Report 8616950 (Version 3)
Quarter: 2012Q4

REPORT INFORMATION
  Report Type: 
  Country: US (occurrence: US)
  Receive Date: 20120615
  Receipt Date: 20121204
  Transmission Date: 20130627
  Serious: No
  Sender: FDA-Public Use
  Company Number: PHEH2012US011817

PATIENT
  Age: 70 Year
  Sex: Female
  Weight: 62.59 kg

DRUGS (12)
  1. TASIGNA [Suspect]
     Dosage: 300 mg, BID
     Route: 048
  2. HYDROCHLOROTHIAZID [Concomitant]
  3. ZOCOR [Concomitant]
  4. PROPRANOLOL [Concomitant]
  5. LOTREL [Concomitant]
  6. RANITIDINE [Concomitant]
  7. VITAMIN C [Concomitant]
  8. KLOR-CON [Concomitant]
  9. ALLOPURINOL [Concomitant]
  10. FLUOXETINE [Concomitant]
  11. IRON [Concomitant]
  12. CITRACAL [Concomitant]

REACTIONS (11)
  - Nausea [Unknown]
  - Fatigue [Unknown]
  - Weight decreased [Unknown]
  - Alopecia [Unknown]
  - Dry skin [Unknown]
  - Acne [Unknown]
  - Chills [Unknown]
  - Extrasystoles [Unknown]
  - Diarrhoea [Unknown]
  - Urinary tract infection [Unknown]
  - Pyrexia [Unknown]
